FAERS Safety Report 22641421 (Version 2)
Quarter: 2023Q4

REPORT INFORMATION
  Report Type: Spontaneous
  Country: JP (occurrence: JP)
  Receive Date: 20230626
  Receipt Date: 20231124
  Transmission Date: 20240110
  Serious: Yes (Other)
  Sender: FDA-Public Use
  Company Number: JP-GILEAD-2023-0633575

PATIENT
  Age: 73 Year
  Sex: Female

DRUGS (1)
  1. HARVONI [Suspect]
     Active Substance: LEDIPASVIR\SOFOSBUVIR
     Indication: Chronic hepatitis C
     Dosage: UNK
     Route: 065
     Dates: start: 201510

REACTIONS (3)
  - Hepatic cancer recurrent [Unknown]
  - Hepatic cancer recurrent [Unknown]
  - Hepatic cancer recurrent [Unknown]

NARRATIVE: CASE EVENT DATE: 20160201
